FAERS Safety Report 5209304-6 (Version None)
Quarter: 2006Q4

REPORT INFORMATION
  Report Type: 
  Country: None (occurrence: None)
  Receive Date: 20061101
  Receipt Date: 20060814
  Transmission Date: 20070319
  Serious: No
  Sender: FDA-Public Use
  Company Number: SPV1-2006-00418

PATIENT
  Age: 75 Year
  Sex: Male
  Weight: 77.1 kg

DRUGS (1)
  1. FOSRENOL [Suspect]
     Indication: HYPERPHOSPHATAEMIA
     Dosage: 1000 MG, 3X/DAY: TID
     Dates: start: 20060810, end: 20060814

REACTIONS (1)
  - CONSTIPATION [None]
